FAERS Safety Report 16623445 (Version 1)
Quarter: 2019Q3

REPORT INFORMATION
  Report Type: Report from Study
  Country: US (occurrence: US)
  Receive Date: 20190724
  Receipt Date: 20190724
  Transmission Date: 20191004
  Serious: Yes (Life-Threatening, Hospitalization, Other)
  Sender: FDA-Public Use
  Company Number: US-KAMADA LIMITED-2018US013312

PATIENT

DRUGS (2)
  1. GLASSIA [Suspect]
     Active Substance: .ALPHA.1-PROTEINASE INHIBITOR HUMAN
     Indication: PROPHYLAXIS AGAINST GRAFT VERSUS HOST DISEASE
     Dosage: 90 MG/KG, ONCE
     Route: 042
     Dates: start: 20181129, end: 20181129
  2. GLASSIA [Suspect]
     Active Substance: .ALPHA.1-PROTEINASE INHIBITOR HUMAN
     Dosage: 45 MG/KG, TWICE PER WEEK
     Route: 042
     Dates: start: 20181203

REACTIONS (2)
  - Respiratory failure [Unknown]
  - Haemoptysis [Unknown]

NARRATIVE: CASE EVENT DATE: 20181203
